FAERS Safety Report 21548798 (Version 2)
Quarter: 2022Q4

REPORT INFORMATION
  Report Type: Report from Study
  Country: US (occurrence: US)
  Receive Date: 20221103
  Receipt Date: 20221226
  Transmission Date: 20230113
  Serious: No
  Sender: FDA-Public Use
  Company Number: US-ABBVIE-22K-163-4438664-00

PATIENT
  Sex: Female

DRUGS (5)
  1. HUMIRA [Suspect]
     Active Substance: ADALIMUMAB
     Indication: Crohn^s disease
     Route: 058
     Dates: start: 202112
  2. HUMIRA [Suspect]
     Active Substance: ADALIMUMAB
     Dosage: TIME INTERVAL: 1 TOTAL: DAY 1
     Route: 058
     Dates: start: 20211104, end: 20211104
  3. HUMIRA [Suspect]
     Active Substance: ADALIMUMAB
     Dosage: TIME INTERVAL: 1 TOTAL: DAY 15
     Route: 058
     Dates: start: 20211118, end: 20211118
  4. HUMIRA [Suspect]
     Active Substance: ADALIMUMAB
     Route: 058
     Dates: start: 20211202
  5. HUMIRA [Suspect]
     Active Substance: ADALIMUMAB
     Route: 058
     Dates: start: 20211202

REACTIONS (10)
  - Diarrhoea [Unknown]
  - Liver disorder [Unknown]
  - Sinusitis [Unknown]
  - Fatigue [Unknown]
  - Frequent bowel movements [Unknown]
  - Decreased appetite [Unknown]
  - Nasopharyngitis [Unknown]
  - Urinary tract infection [Unknown]
  - Flatulence [Unknown]
  - Headache [Unknown]

NARRATIVE: CASE EVENT DATE: 20220101
